FAERS Safety Report 18628740 (Version 1)
Quarter: 2020Q4

REPORT INFORMATION
  Report Type: Spontaneous
  Country: MY (occurrence: MY)
  Receive Date: 20201217
  Receipt Date: 20201217
  Transmission Date: 20210114
  Serious: Yes (Other)
  Sender: FDA-Public Use
  Company Number: MY-PFIZER INC-2020496769

PATIENT
  Age: 55 Year
  Sex: Female

DRUGS (1)
  1. LEVOPHED [Suspect]
     Active Substance: NOREPINEPHRINE BITARTRATE
     Indication: SEPTIC SHOCK
     Dosage: 0.2 UG/KG
     Route: 041

REACTIONS (3)
  - Swelling [Recovered/Resolved]
  - Hyperhidrosis [Recovered/Resolved]
  - Dyspnoea [Recovered/Resolved]
